FAERS Safety Report 20176247 (Version 1)
Quarter: 2021Q4

REPORT INFORMATION
  Report Type: Spontaneous
  Country: US (occurrence: US)
  Receive Date: 20211213
  Receipt Date: 20211213
  Transmission Date: 20220303
  Serious: Yes (Other)
  Sender: FDA-Public Use
  Company Number: US-PFIZER INC-202101707001

PATIENT
  Age: 67 Year
  Sex: Male

DRUGS (1)
  1. VYNDAMAX [Suspect]
     Active Substance: TAFAMIDIS
     Dosage: 61 MG

REACTIONS (32)
  - Cardiomyopathy [Unknown]
  - Vitreous degeneration [Unknown]
  - Plasma cell myeloma in remission [Unknown]
  - Cataract [Unknown]
  - Restrictive cardiomyopathy [Unknown]
  - Stress cardiomyopathy [Unknown]
  - Benign neoplasm of skin [Unknown]
  - Benign prostatic hyperplasia [Unknown]
  - Lower urinary tract symptoms [Unknown]
  - Foot deformity [Unknown]
  - Chest pain [Unknown]
  - Cognitive disorder [Unknown]
  - Diverticulum intestinal [Unknown]
  - Epiretinal membrane [Unknown]
  - Haemorrhoids [Unknown]
  - Gout [Unknown]
  - Organic erectile dysfunction [Unknown]
  - Auditory disorder [Unknown]
  - Lipoma [Unknown]
  - Cognitive disorder [Unknown]
  - Type V hyperlipidaemia [Unknown]
  - Electrocardiogram abnormal [Unknown]
  - Hypertonic bladder [Unknown]
  - Pulmonary mass [Unknown]
  - Parkinsonism [Unknown]
  - Skin lesion [Unknown]
  - Splenomegaly [Unknown]
  - Varicose vein [Unknown]
  - Peripheral venous disease [Unknown]
  - Skin ulcer [Unknown]
  - Vitamin D deficiency [Unknown]
  - Muscular weakness [Unknown]
